FAERS Safety Report 6554812-9 (Version None)
Quarter: 2010Q1

REPORT INFORMATION
  Report Type: 
  Country: None (occurrence: None)
  Receive Date: 20100127
  Receipt Date: 20100120
  Transmission Date: 20100710
  Serious: Yes (Hospitalization)
  Sender: FDA-Public Use
  Company Number: FR-RB-349-2003

PATIENT
  Age: 37 Year
  Sex: Male
  Weight: 70 kg

DRUGS (1)
  1. SUBUTEX [Suspect]
     Indication: DRUG WITHDRAWAL SYNDROME
     Dosage: DOSING DETAILS UNKNOWN
     Route: 042
     Dates: end: 20031001

REACTIONS (5)
  - EMBOLISM [None]
  - INCORRECT ROUTE OF DRUG ADMINISTRATION [None]
  - INJECTION SITE ABSCESS [None]
  - RETINAL HAEMORRHAGE [None]
  - SUBSTANCE ABUSE [None]
